FAERS Safety Report 8370722-9 (Version None)
Quarter: 2012Q2

REPORT INFORMATION
  Report Type: 
  Country: None (occurrence: None)
  Receive Date: 20120517
  Receipt Date: 20120515
  Transmission Date: 20120825
  Serious: Yes (Other)
  Sender: FDA-Public Use
  Company Number: ADR-2011-10991

PATIENT
  Sex: Female

DRUGS (2)
  1. DILAUDID [Concomitant]
  2. LIORESAL [Suspect]
     Indication: MUSCLE SPASTICITY
     Dosage: 87.57 MCG, DAILY, INTRATH
     Route: 037

REACTIONS (7)
  - PSEUDOMENINGOCELE [None]
  - CONTUSION [None]
  - THERAPEUTIC RESPONSE DECREASED [None]
  - WEIGHT INCREASED [None]
  - MUSCLE SPASMS [None]
  - FALL [None]
  - PAIN [None]
